FAERS Safety Report 23436469 (Version 2)
Quarter: 2024Q1

REPORT INFORMATION
  Report Type: Spontaneous
  Country: IE (occurrence: IE)
  Receive Date: 20240124
  Receipt Date: 20240211
  Transmission Date: 20240410
  Serious: Yes (Other)
  Sender: FDA-Public Use
  Company Number: IE-MYLANLABS-2024M1002883

PATIENT

DRUGS (1)
  1. CREON [Suspect]
     Active Substance: PANCRELIPASE AMYLASE\PANCRELIPASE LIPASE\PANCRELIPASE PROTEASE
     Indication: Product used for unknown indication
     Dosage: 6 DOSAGE FORM, BID (6XCREON 25000 CAPSULES PER MEAL, TOTAL 150000)?25000 GASTRO-RESISTANT CAPSULES
     Route: 048

REACTIONS (2)
  - Drug dependence [Unknown]
  - Product dispensing error [Unknown]
